FAERS Safety Report 7784035-7 (Version None)
Quarter: 2011Q3

REPORT INFORMATION
  Report Type: 
  Country: None (occurrence: None)
  Receive Date: 20110928
  Receipt Date: 20110919
  Transmission Date: 20111222
  Serious: Yes (Hospitalization, Other)
  Sender: FDA-Public Use
  Company Number: US-BAYER-2011-021995

PATIENT
  Age: 22 Year
  Sex: Female

DRUGS (3)
  1. DROSPIRENONE AND ETHINYL ESTRADIOL [Suspect]
     Indication: CONTRACEPTION
     Dosage: UNK
     Dates: start: 20080831, end: 20091001
  2. AZITHROMYCIN [Concomitant]
     Dosage: UNK
     Dates: start: 20090101, end: 20091201
  3. AZITHROMYCIN [Concomitant]
     Dosage: UNK
     Dates: start: 20080501, end: 20081201

REACTIONS (5)
  - TACHYCARDIA [None]
  - INJURY [None]
  - CHOLECYSTITIS CHRONIC [None]
  - CHOLELITHIASIS [None]
  - PAIN [None]
